FAERS Safety Report 9841583 (Version 1)
Quarter: 2013Q4

REPORT INFORMATION
  Report Type: Spontaneous
  Country: US (occurrence: None)
  Receive Date: 20131219
  Receipt Date: 20131219
  Transmission Date: 20140711
  Serious: Yes (Hospitalization, Other)
  Sender: FDA-Public Use
  Company Number: 163-20785-13054194

PATIENT
  Age: 70 Year
  Sex: Male

DRUGS (10)
  1. THALOMID [Suspect]
     Indication: MYELODYSPLASTIC SYNDROME
     Dosage: 50 MG, 1 IN 1 D, PO, TEMPORARILY INTERRUPTED
     Route: 048
     Dates: start: 20130328
  2. MEGESTROL ACETATE (MEGESTROL ACETATE) [Concomitant]
  3. MAALOX PLULS (MAALOX PLUS) [Concomitant]
  4. IPRATROPIUM (IPRATROPIUM) [Concomitant]
  5. PREDNISONE (PREDNISONE) [Concomitant]
  6. EXJADE (DEFERASIROX) [Concomitant]
  7. GLYBURIDE (GLIBENCLAMIDE) [Concomitant]
  8. TYLENOL (PARACETAMOL) [Concomitant]
  9. VITAMIN B6 (PYRIDOXINE HYDROCHLORIDE) [Concomitant]
  10. DIGOXIN (DIGOXIN) [Concomitant]

REACTIONS (5)
  - Pneumonia [None]
  - Full blood count decreased [None]
  - Local swelling [None]
  - Rash [None]
  - Urinary incontinence [None]
